FAERS Safety Report 19273543 (Version 1)
Quarter: 2021Q2

REPORT INFORMATION
  Report Type: Spontaneous
  Country: US (occurrence: US)
  Receive Date: 20210518
  Receipt Date: 20210518
  Transmission Date: 20210717
  Serious: Yes (Hospitalization)
  Sender: FDA-Public Use
  Company Number: None

PATIENT
  Age: 42 Year
  Sex: Female

DRUGS (6)
  1. HUMIRA [Suspect]
     Active Substance: ADALIMUMAB
     Indication: RHEUMATOID ARTHRITIS
     Dosage: ?          OTHER FREQUENCY:Q2WK;?
     Route: 058
     Dates: start: 20200116
  2. TRAMADOL. [Concomitant]
     Active Substance: TRAMADOL
  3. FOLIC ACID. [Concomitant]
     Active Substance: FOLIC ACID
  4. METHYLPRED [Concomitant]
     Active Substance: METHYLPREDNISOLONE
  5. METHOTREXATE. [Concomitant]
     Active Substance: METHOTREXATE
  6. VALACYCLOVIR [Concomitant]
     Active Substance: VALACYCLOVIR HYDROCHLORIDE

REACTIONS (1)
  - Herpes zoster [None]

NARRATIVE: CASE EVENT DATE: 20210510
